FAERS Safety Report 24039154 (Version 2)
Quarter: 2024Q3

REPORT INFORMATION
  Report Type: Spontaneous
  Country: US (occurrence: US)
  Receive Date: 20240702
  Receipt Date: 20240725
  Transmission Date: 20241016
  Serious: Yes (Other)
  Sender: Vantive US Healthcare
  Company Number: US-VANTIVE-2024VAN017941

PATIENT
  Age: 71 Year
  Sex: Male

DRUGS (1)
  1. DIANEAL [Suspect]
     Active Substance: CALCIUM CHLORIDE\DEXTROSE\MAGNESIUM CHLORIDE\SODIUM CHLORIDE\SODIUM LACTATE
     Route: 033

REACTIONS (5)
  - Peritonitis bacterial [Recovered/Resolved]
  - Peritoneal cloudy effluent [Unknown]
  - Abdominal pain [Unknown]
  - Device connection issue [Unknown]
  - Wrong technique in device usage process [Unknown]

NARRATIVE: CASE EVENT DATE: 20240618
